FAERS Safety Report 9224223 (Version 1)
Quarter: 2013Q1

REPORT INFORMATION
  Report Type: Spontaneous
  Country: US (occurrence: None)
  Receive Date: 20120914
  Receipt Date: 20120914
  Transmission Date: 20140127
  Serious: No
  Sender: FDA-Public Use
  Company Number: JPI-P-016752

PATIENT
  Age: 62 Year
  Sex: Female
  Weight: 84.82 kg

DRUGS (4)
  1. XYREM (500 MILLIGRAM/MILLILITERS, SOLUTION) (SODIUM OXYBATE) [Suspect]
     Indication: INSOMNIA
     Route: 048
     Dates: start: 20110816
  2. METHOTREXATE [Concomitant]
  3. ESCITALOPRAM OXALATE [Concomitant]
  4. PRAVASTATIN [Concomitant]

REACTIONS (1)
  - Sleep apnoea syndrome [None]
